FAERS Safety Report 13652341 (Version 1)
Quarter: 2017Q2

REPORT INFORMATION
  Report Type: Spontaneous
  Country: US (occurrence: US)
  Receive Date: 20170614
  Receipt Date: 20170614
  Transmission Date: 20170830
  Serious: Yes (Other)
  Sender: FDA-Public Use
  Company Number: US-ASTRAZENECA-2017SE60264

PATIENT
  Age: 78 Year
  Sex: Female
  Weight: 57.2 kg

DRUGS (4)
  1. METOPROLOL. [Suspect]
     Active Substance: METOPROLOL
     Indication: BLOOD PRESSURE ABNORMAL
     Route: 048
  2. FASLODEX [Suspect]
     Active Substance: FULVESTRANT
     Dosage: 500 MG MONTHLY, OR TWO 250 MG ADMINISTERED AS ONE 250 MG IN EACH BUTTOCK
     Route: 030
     Dates: start: 201703
  3. VALSARTAN. [Concomitant]
     Active Substance: VALSARTAN
     Indication: BLOOD PRESSURE ABNORMAL
     Route: 048
     Dates: start: 201703
  4. NOLVADEX [Suspect]
     Active Substance: TAMOXIFEN CITRATE
     Indication: BREAST CANCER FEMALE
     Route: 048
     Dates: start: 2007

REACTIONS (7)
  - Thirst [Recovered/Resolved]
  - Laboratory test abnormal [Unknown]
  - Urine output decreased [Recovered/Resolved]
  - Drug ineffective [Unknown]
  - Arrhythmia [Recovered/Resolved]
  - Fluid retention [Recovered/Resolved]
  - Blood pressure increased [Unknown]

NARRATIVE: CASE EVENT DATE: 2014
